FAERS Safety Report 8549404-6 (Version None)
Quarter: 2012Q3

REPORT INFORMATION
  Report Type: 
  Country: None (occurrence: None)
  Receive Date: 20120730
  Receipt Date: 20120725
  Transmission Date: 20120928
  Serious: Yes (Other)
  Sender: FDA-Public Use
  Company Number: US-PFIZER INC-2012181076

PATIENT
  Sex: Female
  Weight: 79.365 kg

DRUGS (18)
  1. LYRICA [Suspect]
     Dosage: 100 MG, 3X/DAY
     Route: 048
  2. KLONOPIN [Concomitant]
     Indication: ANXIETY
     Dosage: UNK
  3. NEURONTIN [Suspect]
     Indication: CAUDA EQUINA SYNDROME
     Dosage: 100 MG, 3X/DAY
     Route: 048
     Dates: start: 20070101, end: 20070101
  4. ZONISAMIDE [Concomitant]
     Indication: BURNING SENSATION
  5. ATIVAN [Concomitant]
     Indication: ANXIETY
     Dosage: UNK
  6. ATIVAN [Concomitant]
     Indication: PANIC ATTACK
  7. XANAX [Concomitant]
     Indication: ANXIETY
     Dosage: UNK
  8. XANAX [Concomitant]
     Indication: PANIC ATTACK
  9. LYRICA [Suspect]
     Indication: CAUDA EQUINA SYNDROME
     Dosage: UNK
     Route: 048
     Dates: start: 20070101, end: 20070101
  10. ZONISAMIDE [Concomitant]
     Indication: VULVOVAGINAL BURNING SENSATION
     Dosage: 100 MG, 1X/DAY
  11. ZONISAMIDE [Concomitant]
  12. PREDNISONE [Suspect]
     Indication: RESPIRATORY DISORDER
     Dosage: UNK
     Route: 042
  13. PREDNISONE [Suspect]
  14. LEVOTHYROXINE [Concomitant]
     Indication: THYROID DISORDER
     Dosage: UNK
  15. AMITRIPTYLINE HCL [Suspect]
     Dosage: UNK
  16. KLONOPIN [Concomitant]
     Indication: PANIC ATTACK
  17. LYRICA [Suspect]
     Dosage: 100 MG, 1X/DAY
     Route: 048
     Dates: start: 20070101
  18. PREDNISONE [Suspect]
     Indication: CENTRAL NERVOUS SYSTEM INFLAMMATION

REACTIONS (2)
  - WEIGHT DECREASED [None]
  - NEOPLASM PROGRESSION [None]
